FAERS Safety Report 22150329 (Version 1)
Quarter: 2023Q1

REPORT INFORMATION
  Report Type: Spontaneous
  Country: US (occurrence: US)
  Receive Date: 20230329
  Receipt Date: 20230329
  Transmission Date: 20230418
  Serious: Yes (Other)
  Sender: FDA-Public Use
  Company Number: US-AMGEN-USASP2023050889

PATIENT
  Age: 65 Year
  Sex: Female

DRUGS (1)
  1. BEVACIZUMAB [Suspect]
     Active Substance: BEVACIZUMAB
     Indication: Diabetic retinopathy
     Dosage: 1.25 MILLIGRAM (0.05 CC)

REACTIONS (7)
  - Vitreous haemorrhage [Unknown]
  - Retinal detachment [Unknown]
  - Retinal haemorrhage [Unknown]
  - Retinal artery occlusion [Unknown]
  - Retinal vein occlusion [Unknown]
  - Beta-2 glycoprotein antibody [Unknown]
  - Off label use [Unknown]
